FAERS Safety Report 23241616 (Version 2)
Quarter: 2024Q1

REPORT INFORMATION
  Report Type: Spontaneous
  Country: GB (occurrence: GB)
  Receive Date: 20231129
  Receipt Date: 20240216
  Transmission Date: 20240409
  Serious: Yes (Hospitalization)
  Sender: FDA-Public Use
  Company Number: GB-MYLANLABS-2023M1125532

PATIENT
  Sex: Male

DRUGS (2)
  1. CLOZARIL [Suspect]
     Active Substance: CLOZAPINE
     Indication: Schizophrenia
     Dosage: UNK
     Route: 048
     Dates: start: 20110524
  2. HEROIN [Concomitant]
     Active Substance: DIAMORPHINE
     Dosage: UNK
     Route: 065

REACTIONS (2)
  - Mental impairment [Recovered/Resolved]
  - Drug use disorder [Recovered/Resolved]
